FAERS Safety Report 5295448-X (Version None)
Quarter: 2007Q2

REPORT INFORMATION
  Report Type: 
  Country: None (occurrence: None)
  Receive Date: 20070412
  Receipt Date: 20070402
  Transmission Date: 20071010
  Serious: Yes (Hospitalization, Other)
  Sender: FDA-Public Use
  Company Number: US-MERCK-0601USA02830

PATIENT
  Age: 76 Year
  Sex: Male

DRUGS (10)
  1. FOSAMAX [Suspect]
     Indication: OSTEOPOROSIS
     Route: 048
  2. FOSAMAX [Suspect]
     Indication: OSTEOPENIA
     Route: 048
  3. CRESTOR [Concomitant]
     Route: 065
  4. [THERAPY UNSPECIFIED] [Concomitant]
     Route: 065
  5. ZOMETA [Suspect]
     Route: 065
     Dates: start: 20031101
  6. ASPIRIN [Concomitant]
     Route: 065
  7. VIOXX [Concomitant]
     Route: 065
  8. METOPROLOL TARTRATE [Concomitant]
     Route: 065
  9. DIGOXIN [Concomitant]
     Route: 065
  10. DIOVAN HCT [Concomitant]
     Route: 065

REACTIONS (18)
  - ARRHYTHMIA [None]
  - ARTHROPATHY [None]
  - BLOOD CREATININE INCREASED [None]
  - CHOLELITHIASIS [None]
  - CORONARY ARTERY DISEASE [None]
  - DYSURIA [None]
  - EPIDERMOLYSIS [None]
  - FEMORAL ARTERY ANEURYSM [None]
  - HEPATIC CYST [None]
  - HYPOTENSION [None]
  - HYPOTHYROIDISM [None]
  - OSTEOMYELITIS [None]
  - OSTEONECROSIS [None]
  - RENAL ATROPHY [None]
  - RENAL CYST [None]
  - RENAL PAIN [None]
  - RIB FRACTURE [None]
  - ULCER [None]
